FAERS Safety Report 7245396-0 (Version None)
Quarter: 2011Q1

REPORT INFORMATION
  Report Type: 
  Country: None (occurrence: None)
  Receive Date: 20110126
  Receipt Date: 20110119
  Transmission Date: 20110831
  Serious: Yes (Other)
  Sender: FDA-Public Use
  Company Number: JP-GENZYME-FLUD-1000639

PATIENT

DRUGS (9)
  1. FLUDARA [Suspect]
     Indication: BONE MARROW CONDITIONING REGIMEN
     Dosage: 25 MG/M2, UNK
     Route: 065
  2. ANTIVIRALS FOR SYSTEMIC USE [Concomitant]
     Indication: PROPHYLAXIS
  3. METHOTREXATE [Concomitant]
     Indication: PROPHYLAXIS AGAINST GRAFT VERSUS HOST DISEASE
     Dosage: 15 MG/M2, UNK, DAY 1
     Route: 065
  4. ANTIBACTERIALS FOR SYSTEMIC USE [Concomitant]
     Indication: PROPHYLAXIS
  5. CYCLOPHOSPHAMIDE [Suspect]
     Indication: BONE MARROW CONDITIONING REGIMEN
     Dosage: 750 MG/M2, UNK
     Route: 065
  6. CYCLOSPORINE [Concomitant]
     Indication: PROPHYLAXIS AGAINST GRAFT VERSUS HOST DISEASE
     Dosage: 3 MG/KG, CONTINUOUS INFUSION FROM DAY -1
     Route: 042
  7. METHOTREXATE [Concomitant]
     Dosage: 10 MG/M2, UNK, DAYS 3,6,11 POST TRANSFUSION
     Route: 065
  8. ANTIFUNGALS FOR SYSTEMIC USE [Concomitant]
     Indication: PROPHYLAXIS
  9. NEUPOGEN [Concomitant]
     Indication: PRODUCT USED FOR UNKNOWN INDICATION

REACTIONS (2)
  - CHRONIC GRAFT VERSUS HOST DISEASE [None]
  - CYTOMEGALOVIRUS ENTERITIS [None]
